FAERS Safety Report 19710911 (Version 2)
Quarter: 2021Q3

REPORT INFORMATION
  Report Type: Spontaneous
  Country: US (occurrence: US)
  Receive Date: 20210817
  Receipt Date: 20210908
  Transmission Date: 20211014
  Serious: No
  Sender: FDA-Public Use
  Company Number: US-ASTRAZENECA-2021A632332

PATIENT
  Age: 27173 Day
  Sex: Male
  Weight: 88 kg

DRUGS (1)
  1. BYDUREON BCISE [Suspect]
     Active Substance: EXENATIDE
     Indication: TYPE 2 DIABETES MELLITUS
     Route: 058

REACTIONS (6)
  - Hypoacusis [Not Recovered/Not Resolved]
  - Injury associated with device [Unknown]
  - Injection site haemorrhage [Unknown]
  - Device leakage [Unknown]
  - Needle issue [Unknown]
  - Device use issue [Unknown]

NARRATIVE: CASE EVENT DATE: 20210719
